FAERS Safety Report 5139292-2 (Version None)
Quarter: 2006Q4

REPORT INFORMATION
  Report Type: 
  Country: None (occurrence: None)
  Receive Date: 20061024
  Receipt Date: 20061017
  Transmission Date: 20070319
  Serious: Yes (Other)
  Sender: FDA-Public Use
  Company Number: 230481

PATIENT
  Age: 37 Year
  Sex: Female

DRUGS (18)
  1. XOLAIR [Suspect]
     Indication: DRUG USE FOR UNKNOWN INDICATION
     Dosage: 225 MG, Q2W, SUBCUTANEOUS
     Route: 058
     Dates: start: 20060101
  2. PAIN MEDICATION (ANALGESIC NOS) [Concomitant]
  3. ADVAIR DISKUS 100/50 [Concomitant]
  4. VOLMAX (ALBUTEROL/ALBUTEROL SULFATE) [Concomitant]
  5. ALBUTEROL (ALBUTEROL/ALBUTEROL SULFATE) [Concomitant]
  6. ATROVENT [Concomitant]
  7. FLONASE [Concomitant]
  8. LASIX [Concomitant]
  9. K-DUR 10 [Concomitant]
  10. XANAX [Concomitant]
  11. NYSTATIN ORAL SOLUTION (NYSTATIN) [Concomitant]
  12. TYLENOL #3 (UNITED STATES (ACETAMINOPHEN) [Concomitant]
  13. PHENERGAN (PROMETHAZINE HYDROCHLORIDE) [Concomitant]
  14. TERAZOL CREAM (TERCONAZOLE) [Concomitant]
  15. KEFLEX [Concomitant]
  16. MEDICATION (UNK INGREDIENT) (GENERIC COMPONENT (S)) [Concomitant]
  17. ASTELIN [Concomitant]
  18. PREDNISONE TAB [Concomitant]

REACTIONS (2)
  - AMNESIA [None]
  - COORDINATION ABNORMAL [None]
